FAERS Safety Report 5015300-4 (Version None)
Quarter: 2006Q2

REPORT INFORMATION
  Report Type: 
  Country: None (occurrence: None)
  Receive Date: 20060530
  Receipt Date: 20060530
  Transmission Date: 20061013
  Serious: Yes (Other)
  Sender: FDA-Public Use
  Company Number: None

PATIENT
  Age: 44 Year
  Sex: Female
  Weight: 87.0906 kg

DRUGS (5)
  1. OPTOPICS STERILE EYE DROPS / IRRITATION RELIEF [Suspect]
     Indication: MULTIPLE ALLERGIES
     Dosage: 1 DROP   ONCE DAILY  TOPICAL
     Route: 061
     Dates: start: 20060522, end: 20060522
  2. AZMACORT [Concomitant]
  3. ALBUTEROL [Concomitant]
  4. ADVIR DISKUS [Concomitant]
  5. NASALCORT [Concomitant]

REACTIONS (9)
  - EYE IRRITATION [None]
  - EYE MOVEMENT DISORDER [None]
  - EYE PAIN [None]
  - EYE PRURITUS [None]
  - EYE SWELLING [None]
  - EYELID CYST [None]
  - EYELID DISORDER [None]
  - ULCER [None]
  - VISION BLURRED [None]
